FAERS Safety Report 16915101 (Version 5)
Quarter: 2019Q4

REPORT INFORMATION
  Report Type: Report from Study
  Country: CA (occurrence: CA)
  Receive Date: 20191014
  Receipt Date: 20191223
  Transmission Date: 20200122
  Serious: Yes (Other)
  Sender: FDA-Public Use
  Company Number: CA-BRISTOL-MYERS SQUIBB COMPANY-BMS-2019-085550

PATIENT
  Age: 53 Year
  Sex: Male

DRUGS (3)
  1. STRATTERA [Concomitant]
     Active Substance: ATOMOXETINE HYDROCHLORIDE
     Indication: PRODUCT USED FOR UNKNOWN INDICATION
     Route: 065
  2. NIVOLUMAB [Suspect]
     Active Substance: NIVOLUMAB
     Indication: MALIGNANT MELANOMA
     Dosage: 354 MILLIGRAM, Q2WK
     Route: 042
     Dates: start: 20190816
  3. GABAPENTIN. [Concomitant]
     Active Substance: GABAPENTIN
     Indication: PRODUCT USED FOR UNKNOWN INDICATION
     Route: 065

REACTIONS (22)
  - Somnolence [Recovered/Resolved]
  - Appetite disorder [Recovered/Resolved]
  - General physical condition [Recovered/Resolved]
  - Vision blurred [Unknown]
  - Infection [Unknown]
  - Eye discharge [Unknown]
  - Rash pruritic [Unknown]
  - Cellulitis [Unknown]
  - Pain [Recovered/Resolved]
  - Anxiety [Recovered/Resolved]
  - Constipation [Unknown]
  - Nausea [Unknown]
  - Fatigue [Recovered/Resolved]
  - Depression [Recovered/Resolved]
  - Amnesia [Recovered/Resolved]
  - Rash [Recovered/Resolved]
  - Bowel movement irregularity [Recovered/Resolved]
  - Visual impairment [Unknown]
  - Chest pain [Unknown]
  - Superficial injury of eye [Recovered/Resolved]
  - Skin mass [Unknown]
  - Dyspnoea [Unknown]

NARRATIVE: CASE EVENT DATE: 20190816
